FAERS Safety Report 6871925-2 (Version None)
Quarter: 2010Q3

REPORT INFORMATION
  Report Type: 
  Country: None (occurrence: None)
  Receive Date: 20100723
  Receipt Date: 20100716
  Transmission Date: 20110219
  Serious: Yes (Other)
  Sender: FDA-Public Use
  Company Number: US-JNJFOC-20100505833

PATIENT
  Sex: Female
  Weight: 19.5 kg

DRUGS (6)
  1. CHILDREN'S TYLENOL SUSPENSION [Suspect]
     Indication: PAIN
     Dosage: EVERY 4-6 HOURS
     Route: 048
     Dates: start: 20100428, end: 20100503
  2. CHILDREN'S TYLENOL SUSPENSION [Suspect]
     Indication: HEADACHE
     Dosage: EVERY 4-6 HOURS
     Route: 048
     Dates: start: 20100428, end: 20100503
  3. CHILDREN'S TYLENOL SUSPENSION [Suspect]
     Indication: INJURY
     Dosage: EVERY 4-6 HOURS
     Route: 048
     Dates: start: 20100428, end: 20100503
  4. CHILDREN'S TYLENOL SUSPENSION [Suspect]
     Indication: FALL
     Dosage: EVERY 4-6 HOURS
     Route: 048
     Dates: start: 20100428, end: 20100503
  5. CHILDREN'S TYLENOL SUSPENSION [Suspect]
  6. CHILDREN'S TYLENOL SUSPENSION [Suspect]
     Indication: PRODUCT USED FOR UNKNOWN INDICATION

REACTIONS (7)
  - ASTHENIA [None]
  - CHEST PAIN [None]
  - MALAISE [None]
  - PRODUCT QUALITY ISSUE [None]
  - PYREXIA [None]
  - VOMITING [None]
  - WEIGHT DECREASED [None]
